FAERS Safety Report 6011087-7 (Version None)
Quarter: 2008Q4

REPORT INFORMATION
  Report Type: 
  Country: None (occurrence: None)
  Receive Date: 20081218
  Receipt Date: 20081208
  Transmission Date: 20090506
  Serious: Yes (Other)
  Sender: FDA-Public Use
  Company Number: US-AVENTIS-200818328US

PATIENT
  Sex: Female

DRUGS (6)
  1. LANTUS [Suspect]
     Dosage: DOSE: UNK
     Route: 051
     Dates: start: 20030101
  2. PLAVIX [Suspect]
     Indication: STENT PLACEMENT
     Dates: start: 20040101
  3. LIPITOR [Concomitant]
     Indication: BLOOD CHOLESTEROL ABNORMAL
     Dosage: DOSE: UNK
  4. ASPIRIN [Concomitant]
     Dosage: DOSE: UNK
  5. COREG [Concomitant]
     Dosage: DOSE: UNK
     Dates: start: 20081201
  6. CARDIOVASCULAR SYSTEM DRUGS [Concomitant]
     Dosage: DOSE: UNK
     Dates: end: 20081201

REACTIONS (4)
  - BLOOD GLUCOSE DECREASED [None]
  - BLOOD GLUCOSE INCREASED [None]
  - MYOCARDIAL INFARCTION [None]
  - TREMOR [None]
